FAERS Safety Report 6639360-X (Version None)
Quarter: 2010Q1

REPORT INFORMATION
  Report Type: 
  Country: None (occurrence: None)
  Receive Date: 20100318
  Receipt Date: 20100308
  Transmission Date: 20100710
  Serious: Yes (Death, Hospitalization)
  Sender: FDA-Public Use
  Company Number: BE-BIOGENIDEC-2010BI001979

PATIENT
  Sex: Female

DRUGS (12)
  1. TYSABRI [Suspect]
     Indication: RELAPSING-REMITTING MULTIPLE SCLEROSIS
     Route: 042
     Dates: start: 20100107, end: 20100107
  2. MOVICOL [Concomitant]
  3. BACLOFEN [Concomitant]
  4. URFADYN [Concomitant]
  5. TRANSTEC [Concomitant]
  6. MYOLASTAN [Concomitant]
  7. TRAZODON [Concomitant]
  8. CITALOPRAM HYDROBROMIDE [Concomitant]
  9. TEMESTA [Concomitant]
  10. TRILEPTAL [Concomitant]
  11. NEURONTIN [Concomitant]
  12. DAFALFAN [Concomitant]

REACTIONS (4)
  - CANDIDA SEPSIS [None]
  - DEATH [None]
  - MULTIPLE SCLEROSIS RELAPSE [None]
  - PULMONARY EMBOLISM [None]
